FAERS Safety Report 5526696-9 (Version None)
Quarter: 2007Q4

REPORT INFORMATION
  Report Type: 
  Country: None (occurrence: None)
  Receive Date: 20071120
  Receipt Date: 20061206
  Transmission Date: 20080405
  Serious: Yes (Other)
  Sender: FDA-Public Use
  Company Number: 2006150942

PATIENT
  Weight: 204 kg

DRUGS (1)
  1. TIKOSYN [Suspect]
     Indication: ATRIAL FLUTTER
     Dosage: 1 MG (500 MCG,1 IN 12 HR)

REACTIONS (1)
  - DRUG INEFFECTIVE [None]
